FAERS Safety Report 9222321 (Version 2)
Quarter: 2013Q4

REPORT INFORMATION
  Report Type: Other
  Country: GB (occurrence: GB)
  Receive Date: 20130410
  Receipt Date: 20131009
  Transmission Date: 20140711
  Serious: Yes (Hospitalization, Other)
  Sender: FDA-Public Use
  Company Number: GB-TARO PHARMACEUTICALS U.S.A., INC-2013SUN00446

PATIENT
  Sex: 0

DRUGS (6)
  1. WARFARIN [Suspect]
     Indication: ATRIAL FIBRILLATION
     Dosage: 8 OR 9 MG , OD
     Route: 065
  2. VERAPAMIL [Interacting]
     Indication: ATRIAL FIBRILLATION
     Dosage: 80 MG,THREE PER ONE DAY
     Route: 065
  3. TAMSULOSIN [Interacting]
     Indication: PROSTATOMEGALY
     Dosage: 400 MCG, ONE PER ONE DAY
     Route: 065
  4. LEVOTHYROXINE [Interacting]
     Indication: HYPOTHYROIDISM
     Dosage: 150 MCG, ONE PER ONE DAY
     Route: 065
  5. CLENIL MODULITE [Interacting]
     Indication: ASTHMA
     Dosage: 200 MCG, TWO PER ONE DAY
     Dates: start: 20130219
  6. OCUVITE [Concomitant]

REACTIONS (5)
  - Drug interaction [Unknown]
  - Cerebrovascular accident [Unknown]
  - Haemorrhage [Unknown]
  - Therapeutic response unexpected [Unknown]
  - International normalised ratio decreased [Unknown]
